FAERS Safety Report 18958195 (Version 49)
Quarter: 2023Q1

REPORT INFORMATION
  Report Type: Spontaneous
  Country: GB (occurrence: GB)
  Receive Date: 20210302
  Receipt Date: 20230217
  Transmission Date: 20230417
  Serious: Yes (Hospitalization, Other)
  Sender: FDA-Public Use
  Company Number: GB-CUBIST PHARMACEUTICALS, INC.-2013CBST000199

PATIENT
  Age: 71 Year
  Sex: Female
  Weight: 57 kg

DRUGS (153)
  1. SIMVASTATIN [Suspect]
     Active Substance: SIMVASTATIN
     Indication: Infection
     Dosage: UNK
     Route: 048
  2. SIMVASTATIN [Suspect]
     Active Substance: SIMVASTATIN
     Indication: Atrial fibrillation
     Dosage: UNK
     Route: 048
  3. SIMVASTATIN [Suspect]
     Active Substance: SIMVASTATIN
     Dosage: UNK
     Route: 048
  4. SIMVASTATIN [Suspect]
     Active Substance: SIMVASTATIN
     Dosage: UNK
     Route: 048
  5. SIMVASTATIN [Suspect]
     Active Substance: SIMVASTATIN
     Dosage: UNK
     Route: 048
  6. CUBICIN [Suspect]
     Active Substance: DAPTOMYCIN
     Indication: Arthritis infective
     Dosage: 350 MG, ONCE A DAY POWDER FOR SOLUTION FOR INFUSION
     Route: 042
     Dates: start: 20130306, end: 20130310
  7. CUBICIN [Suspect]
     Active Substance: DAPTOMYCIN
     Indication: Joint injection
     Dosage: 350 MG, QD, POWDER FOR SOLUTION FOR INFUSION
     Route: 042
     Dates: start: 20130306, end: 20130310
  8. CUBICIN [Suspect]
     Active Substance: DAPTOMYCIN
     Indication: Infection
     Dosage: UNK, POWDER FOR SOLUTION FOR INFUSION
     Route: 042
  9. CUBICIN [Suspect]
     Active Substance: DAPTOMYCIN
     Indication: Atrial fibrillation
     Dosage: UNK
     Route: 041
  10. CUBICIN [Suspect]
     Active Substance: DAPTOMYCIN
     Indication: Arthritis infective
     Dosage: UNK
     Route: 048
  11. DAPTOMYCIN [Suspect]
     Active Substance: DAPTOMYCIN
     Indication: Infection
     Dosage: 350 MILLIGRAM, ONCE A DAY, BATCH/LOT NUMBER: CDF058E (POSSIBLY, NOT 100% SURE) INDICATION: ARTHRITIS
     Route: 042
     Dates: start: 20130306, end: 20130310
  12. DAPTOMYCIN [Suspect]
     Active Substance: DAPTOMYCIN
     Indication: Atrial fibrillation
  13. DAPTOMYCIN [Suspect]
     Active Substance: DAPTOMYCIN
     Indication: Joint injection
  14. DAPTOMYCIN [Suspect]
     Active Substance: DAPTOMYCIN
     Indication: Arthritis infective
  15. DAPTOMYCIN [Suspect]
     Active Substance: DAPTOMYCIN
     Dosage: 350 MILLIGRAM, ONCE A DAY
     Route: 048
     Dates: start: 20130306, end: 20130310
  16. MOMETASONE FUROATE [Concomitant]
     Active Substance: MOMETASONE FUROATE
     Indication: Product used for unknown indication
     Dosage: UNK; ADDITIONAL INFO: ROUTE: 065
     Route: 065
  17. MOMETASONE FUROATE [Concomitant]
     Active Substance: MOMETASONE FUROATE
     Dosage: UNK; ADDITIONAL INFO: ROUTE: 065, PKGID=UNKNOWN
     Route: 016
  18. MOMETASONE FUROATE [Concomitant]
     Active Substance: MOMETASONE FUROATE
     Dosage: UNK; ADDITIONAL INFO: ROUTE: 065, PKGID=UNKNOWN
     Route: 016
  19. MOMETASONE FUROATE [Concomitant]
     Active Substance: MOMETASONE FUROATE
     Dosage: UNK; ADDITIONAL INFO: ROUTE: 065
     Route: 065
  20. MOMETASONE FUROATE [Concomitant]
     Active Substance: MOMETASONE FUROATE
     Dosage: UNK; ADDITIONAL INFO: ROUTE: 065, PKGID=UNKNOWN
     Route: 016
  21. MOMETASONE FUROATE [Concomitant]
     Active Substance: MOMETASONE FUROATE
     Dosage: UNK; ADDITIONAL INFO: ROUTE: 065
     Route: 065
  22. MOMETASONE FUROATE [Concomitant]
     Active Substance: MOMETASONE FUROATE
     Dosage: UNK; ADDITIONAL INFO: ROUTE: 065
     Route: 065
  23. MOMETASONE FUROATE [Concomitant]
     Active Substance: MOMETASONE FUROATE
     Dosage: UNK (OCCLUSIVE)
     Route: 065
  24. MORPHINE SULFATE [Concomitant]
     Active Substance: MORPHINE SULFATE
     Indication: Product used for unknown indication
     Dosage: UNK; ADDITIONAL INFO: ROUTE: 065
     Route: 065
  25. MORPHINE SULFATE [Concomitant]
     Active Substance: MORPHINE SULFATE
     Dosage: UNK
     Route: 065
  26. MORPHINE SULFATE [Concomitant]
     Active Substance: MORPHINE SULFATE
     Dosage: UNK
     Route: 065
  27. MORPHINE SULFATE [Concomitant]
     Active Substance: MORPHINE SULFATE
     Dosage: UNK
     Route: 065
  28. MORPHINE SULFATE [Concomitant]
     Active Substance: MORPHINE SULFATE
     Dosage: UNK
     Route: 065
  29. ENOXAPARIN SODIUM [Concomitant]
     Active Substance: ENOXAPARIN SODIUM
     Indication: Product used for unknown indication
     Dosage: UNK
     Route: 065
  30. ENOXAPARIN SODIUM [Concomitant]
     Active Substance: ENOXAPARIN SODIUM
     Dosage: UNK (OCCLUSIVE)
     Route: 065
  31. ENOXAPARIN SODIUM [Concomitant]
     Active Substance: ENOXAPARIN SODIUM
     Dosage: UNK
     Route: 065
  32. ACETAMINOPHEN AND CODEINE [Concomitant]
     Active Substance: ACETAMINOPHEN\CODEINE PHOSPHATE
     Indication: Product used for unknown indication
     Dosage: UNK
     Route: 065
  33. ACETAMINOPHEN AND CODEINE [Concomitant]
     Active Substance: ACETAMINOPHEN\CODEINE PHOSPHATE
     Dosage: UNK
     Route: 065
  34. ACETAMINOPHEN AND CODEINE [Concomitant]
     Active Substance: ACETAMINOPHEN\CODEINE PHOSPHATE
     Dosage: 30/500 UNK
     Route: 065
  35. ONDANSETRON [Concomitant]
     Active Substance: ONDANSETRON
     Indication: Product used for unknown indication
     Dosage: UNK (ADDITIONAL INFO: ROUTE: 065)
     Route: 065
  36. ONDANSETRON [Concomitant]
     Active Substance: ONDANSETRON
     Dosage: UNK (ADDITIONAL INFO: ROUTE: 065)
     Route: 065
  37. ONDANSETRON [Concomitant]
     Active Substance: ONDANSETRON
     Dosage: UNK (ADDITIONAL INFO: ROUTE: 065)
     Route: 065
  38. ONDANSETRON [Concomitant]
     Active Substance: ONDANSETRON
     Dosage: UNK (ADDITIONAL INFO: ROUTE: 065)
     Route: 065
  39. ONDANSETRON [Concomitant]
     Active Substance: ONDANSETRON
     Dosage: UNK (ADDITIONAL INFO: ROUTE: 065)
     Route: 065
  40. ONDANSETRON [Concomitant]
     Active Substance: ONDANSETRON
     Dosage: UNK (OCCLUSIVE)
     Route: 065
  41. BENDROFLUMETHIAZIDE [Concomitant]
     Active Substance: BENDROFLUMETHIAZIDE
     Indication: Product used for unknown indication
     Dosage: UNK; ADDITIONAL INFO: ROUTE: 065
     Route: 065
  42. BENDROFLUMETHIAZIDE [Concomitant]
     Active Substance: BENDROFLUMETHIAZIDE
     Dosage: UNK; ADDITIONAL INFO: ROUTE: 065
     Route: 065
  43. BENDROFLUMETHIAZIDE [Concomitant]
     Active Substance: BENDROFLUMETHIAZIDE
     Dosage: UNK; ADDITIONAL INFO: ROUTE: 065
     Route: 065
  44. BENDROFLUMETHIAZIDE [Concomitant]
     Active Substance: BENDROFLUMETHIAZIDE
     Dosage: UNK; ADDITIONAL INFO: ROUTE: 065
     Route: 016
  45. BENDROFLUMETHIAZIDE [Concomitant]
     Active Substance: BENDROFLUMETHIAZIDE
     Dosage: UNK; ADDITIONAL INFO: ROUTE: 065
     Route: 065
  46. BENDROFLUMETHIAZIDE [Concomitant]
     Active Substance: BENDROFLUMETHIAZIDE
     Dosage: UNK; ADDITIONAL INFO: ROUTE: 065
     Route: 065
  47. BENDROFLUMETHIAZIDE [Concomitant]
     Active Substance: BENDROFLUMETHIAZIDE
     Dosage: UNK (OCCLUSIVE)
     Route: 065
  48. ASPIRIN [Concomitant]
     Active Substance: ASPIRIN
     Indication: Product used for unknown indication
     Dosage: UNK
     Route: 065
  49. ASPIRIN [Concomitant]
     Active Substance: ASPIRIN
     Dosage: UNK
     Route: 065
  50. ASPIRIN [Concomitant]
     Active Substance: ASPIRIN
     Dosage: UNK
     Route: 065
  51. ASPIRIN [Concomitant]
     Active Substance: ASPIRIN
     Dosage: UNK
     Route: 016
  52. OMEPRAZOLE [Concomitant]
     Active Substance: OMEPRAZOLE
     Indication: Product used for unknown indication
     Dosage: UNK (ADDITIONAL INFO: ROUTE: 065) (ADDITIONAL INFO: MOMETASONE FUROATE)
     Route: 065
  53. OMEPRAZOLE [Concomitant]
     Active Substance: OMEPRAZOLE
     Dosage: UNK (ADDITIONAL INFO: ROUTE: 065) (ADDITIONAL INFO: MOMETASONE FUROATE)
     Route: 065
  54. OMEPRAZOLE [Concomitant]
     Active Substance: OMEPRAZOLE
     Dosage: UNK (ADDITIONAL INFO: ROUTE: 065) (ADDITIONAL INFO: MOMETASONE FUROATE)
     Route: 065
  55. OMEPRAZOLE [Concomitant]
     Active Substance: OMEPRAZOLE
     Dosage: UNK (ADDITIONAL INFO: ROUTE: 065) (ADDITIONAL INFO: MOMETASONE FUROATE)
     Route: 065
  56. OMEPRAZOLE [Concomitant]
     Active Substance: OMEPRAZOLE
     Dosage: UNK (ADDITIONAL INFO: ROUTE: 065) (ADDITIONAL INFO: MOMETASONE FUROATE)
     Route: 065
  57. OMEPRAZOLE [Concomitant]
     Active Substance: OMEPRAZOLE
     Dosage: UNK (OCCLUSIVE)
     Route: 065
  58. RIFAMPIN [Concomitant]
     Active Substance: RIFAMPIN
     Indication: Product used for unknown indication
     Dosage: UNK (ADDITIONAL INFO: ROUTE: 065)
     Route: 065
  59. RIFAMPIN [Concomitant]
     Active Substance: RIFAMPIN
     Indication: Product used for unknown indication
     Dosage: UNK (ADDITIONAL INFO: ROUTE: 065)
     Route: 065
  60. RIFAMPIN [Concomitant]
     Active Substance: RIFAMPIN
     Dosage: UNK (ADDITIONAL INFO: ROUTE: 065)
     Route: 065
  61. RIFAMPIN [Concomitant]
     Active Substance: RIFAMPIN
     Dosage: UNK (ADDITIONAL INFO: ROUTE: 065)
     Route: 065
  62. RIFAMPIN [Concomitant]
     Active Substance: RIFAMPIN
     Dosage: UNK (ADDITIONAL INFO: ROUTE: 065)
     Route: 065
  63. RIFAMPIN [Concomitant]
     Active Substance: RIFAMPIN
     Dosage: UNK (ADDITIONAL INFO: ROUTE: 065)
     Route: 065
  64. RIFAMPIN [Concomitant]
     Active Substance: RIFAMPIN
     Dosage: UNK (OCCLUSIVE)
     Route: 065
  65. ACETAMINOPHEN [Concomitant]
     Active Substance: ACETAMINOPHEN
     Indication: Product used for unknown indication
     Dosage: UNK
     Route: 065
  66. ACETAMINOPHEN [Concomitant]
     Active Substance: ACETAMINOPHEN
     Dosage: 300/50 UNK
     Route: 065
  67. POTASSIUM BICARBONATE\POTASSIUM CHLORIDE [Concomitant]
     Active Substance: POTASSIUM BICARBONATE\POTASSIUM CHLORIDE
     Indication: Product used for unknown indication
     Dosage: UNK (ADDITIONAL INFO: ROUTE: 065)
     Route: 065
  68. POTASSIUM BICARBONATE\POTASSIUM CHLORIDE [Concomitant]
     Active Substance: POTASSIUM BICARBONATE\POTASSIUM CHLORIDE
     Indication: Product used for unknown indication
     Dosage: UNK (OCCLUSIVE)
  69. POTASSIUM BICARBONATE\POTASSIUM CHLORIDE [Concomitant]
     Active Substance: POTASSIUM BICARBONATE\POTASSIUM CHLORIDE
     Dosage: UNK (OCCLUSIVE)
  70. POTASSIUM BICARBONATE\POTASSIUM CHLORIDE [Concomitant]
     Active Substance: POTASSIUM BICARBONATE\POTASSIUM CHLORIDE
     Dosage: UNK (OCCLUSIVE)
  71. POTASSIUM BICARBONATE\POTASSIUM CHLORIDE [Concomitant]
     Active Substance: POTASSIUM BICARBONATE\POTASSIUM CHLORIDE
     Dosage: UNK (OCCLUSIVE)
  72. CIPROFLOXACIN [Concomitant]
     Active Substance: CIPROFLOXACIN
     Indication: Product used for unknown indication
     Dosage: UNK (ADDITIONAL INFO: ROUTE: 065)
     Route: 065
  73. CIPROFLOXACIN [Concomitant]
     Active Substance: CIPROFLOXACIN
     Dosage: UNK (ADDITIONAL INFO: ROUTE: 065)
     Route: 065
  74. CIPROFLOXACIN [Concomitant]
     Active Substance: CIPROFLOXACIN
     Dosage: UNK (ADDITIONAL INFO: ROUTE: 065)
     Route: 065
  75. CIPROFLOXACIN [Concomitant]
     Active Substance: CIPROFLOXACIN
     Dosage: UNK (ADDITIONAL INFO: ROUTE: 065)
     Route: 065
  76. CIPROFLOXACIN [Concomitant]
     Active Substance: CIPROFLOXACIN
     Dosage: UNK (ADDITIONAL INFO: ROUTE: 065)
     Route: 065
  77. CIPROFLOXACIN [Concomitant]
     Active Substance: CIPROFLOXACIN
     Dosage: UNK (OCCLUSIVE)
  78. CYCLIZINE [Concomitant]
     Active Substance: CYCLIZINE
     Indication: Product used for unknown indication
     Dosage: UNK, (ADDITIONAL INFO: ROUTE: 065)
     Route: 065
  79. CYCLIZINE [Concomitant]
     Active Substance: CYCLIZINE
     Dosage: UNK, (ADDITIONAL INFO: ROUTE: 065)
     Route: 065
  80. CYCLIZINE [Concomitant]
     Active Substance: CYCLIZINE
     Dosage: UNK, (ADDITIONAL INFO: ROUTE: 065)
     Route: 065
  81. CYCLIZINE [Concomitant]
     Active Substance: CYCLIZINE
     Dosage: UNK, (ADDITIONAL INFO: ROUTE: 065)
     Route: 065
  82. CYCLIZINE [Concomitant]
     Active Substance: CYCLIZINE
     Dosage: UNK, (ADDITIONAL INFO: ROUTE: 065)
     Route: 065
  83. CYCLIZINE [Concomitant]
     Active Substance: CYCLIZINE
     Dosage: UNK (OCCLUSIVE)
     Route: 065
  84. GENTAMICIN [Concomitant]
     Active Substance: GENTAMICIN
     Indication: Product used for unknown indication
     Dosage: UNK (ADDITIONAL INFO: ROUTE: 065)
     Route: 065
  85. GENTAMICIN [Concomitant]
     Active Substance: GENTAMICIN
     Dosage: UNK (OCCLUSIVE)
  86. GENTAMICIN [Concomitant]
     Active Substance: GENTAMICIN
     Dosage: UNK
     Route: 016
  87. GENTAMICIN [Concomitant]
     Active Substance: GENTAMICIN
     Dosage: UNK (ADDITIONAL INFO: ROUTE: 065)
     Route: 065
  88. VANCOMYCIN [Concomitant]
     Active Substance: VANCOMYCIN
     Indication: Infection
     Dosage: UNK; ADDITIONAL INFO: ADDITIONAL INFO: ROUTE: 065
     Route: 065
  89. VANCOMYCIN [Concomitant]
     Active Substance: VANCOMYCIN
     Indication: Product used for unknown indication
     Dosage: UNK; ADDITIONAL INFO: ADDITIONAL INFO: ROUTE: 065
     Route: 065
  90. VANCOMYCIN [Concomitant]
     Active Substance: VANCOMYCIN
     Dosage: UNK; ADDITIONAL INFO: ADDITIONAL INFO: ROUTE: 065
     Route: 065
  91. VANCOMYCIN [Concomitant]
     Active Substance: VANCOMYCIN
     Dosage: UNK; ADDITIONAL INFO: ADDITIONAL INFO: ROUTE: 065
     Route: 065
  92. VANCOMYCIN [Concomitant]
     Active Substance: VANCOMYCIN
     Dosage: UNK; ADDITIONAL INFO: ADDITIONAL INFO: ROUTE: 065
     Route: 065
  93. VANCOMYCIN [Concomitant]
     Active Substance: VANCOMYCIN
     Dosage: UNK; ADDITIONAL INFO: ADDITIONAL INFO: ROUTE: 065
     Route: 065
  94. CHLORPHENIRAMINE MALEATE [Concomitant]
     Active Substance: CHLORPHENIRAMINE MALEATE
     Indication: Product used for unknown indication
     Dosage: UNK (ADDITIONAL INFO: ROUTE: 065)
     Route: 065
  95. CHLORPHENIRAMINE MALEATE [Concomitant]
     Active Substance: CHLORPHENIRAMINE MALEATE
     Dosage: UNK (OCCLUSIVE)
  96. CHLORPHENIRAMINE MALEATE [Concomitant]
     Active Substance: CHLORPHENIRAMINE MALEATE
     Dosage: UNK (ADDITIONAL INFO: ROUTE: 065)
     Route: 065
  97. CHLORPHENIRAMINE MALEATE [Concomitant]
     Active Substance: CHLORPHENIRAMINE MALEATE
     Dosage: UNK (ADDITIONAL INFO: ROUTE: 065)
     Route: 065
  98. POTASSIUM [Concomitant]
     Active Substance: POTASSIUM
     Indication: Product used for unknown indication
     Dosage: UNK
     Route: 065
  99. POTASSIUM [Concomitant]
     Active Substance: POTASSIUM
     Dosage: UNK
     Route: 065
  100. POTASSIUM [Concomitant]
     Active Substance: POTASSIUM
     Dosage: UNK
     Route: 065
  101. POTASSIUM [Concomitant]
     Active Substance: POTASSIUM
     Dosage: UNK
     Route: 065
  102. POTASSIUM [Concomitant]
     Active Substance: POTASSIUM
     Dosage: UNK
     Route: 065
  103. COCODAMOL [Concomitant]
     Active Substance: ACETAMINOPHEN\CODEINE PHOSPHATE
     Indication: Product used for unknown indication
     Dosage: UNK, (ADDITIONAL INFO: ROUTE: 065)
     Route: 065
  104. COCODAMOL [Concomitant]
     Active Substance: ACETAMINOPHEN\CODEINE PHOSPHATE
     Dosage: 30/500 UNK (ADDITIONAL INFO: ROUTE: 065)
     Route: 065
  105. COCODAMOL [Concomitant]
     Active Substance: ACETAMINOPHEN\CODEINE PHOSPHATE
     Dosage: UNK, (ADDITIONAL INFO: ROUTE: 065)
     Route: 065
  106. COCODAMOL [Concomitant]
     Active Substance: ACETAMINOPHEN\CODEINE PHOSPHATE
     Dosage: UNK, (ADDITIONAL INFO: ROUTE: 065)
     Route: 065
  107. COCODAMOL [Concomitant]
     Active Substance: ACETAMINOPHEN\CODEINE PHOSPHATE
     Dosage: UNK, (ADDITIONAL INFO: ROUTE: 065)
     Route: 065
  108. COCODAMOL [Concomitant]
     Active Substance: ACETAMINOPHEN\CODEINE PHOSPHATE
     Dosage: UNK (OCCLUSIVE)
     Route: 065
  109. COCODAMOL [Concomitant]
     Active Substance: ACETAMINOPHEN\CODEINE PHOSPHATE
     Dosage: UNK (OCCLUSIVE)
     Route: 065
  110. COCODAMOL [Concomitant]
     Active Substance: ACETAMINOPHEN\CODEINE PHOSPHATE
     Dosage: UNK (OCCLUSIVE)
     Route: 065
  111. COCODAMOL [Concomitant]
     Active Substance: ACETAMINOPHEN\CODEINE PHOSPHATE
     Dosage: UNK (OCCLUSIVE)
     Route: 065
  112. COCODAMOL [Concomitant]
     Active Substance: ACETAMINOPHEN\CODEINE PHOSPHATE
     Dosage: UNK (OCCLUSIVE)
     Route: 065
  113. COCODAMOL [Concomitant]
     Active Substance: ACETAMINOPHEN\CODEINE PHOSPHATE
     Dosage: UNK (OCCLUSIVE)
     Route: 065
  114. TRAMADOL HYDROCHLORIDE [Concomitant]
     Active Substance: TRAMADOL HYDROCHLORIDE
     Indication: Product used for unknown indication
     Dosage: UNK;  ADDITIONAL INFO: ROUTE: 065
     Route: 065
  115. TRAMADOL HYDROCHLORIDE [Concomitant]
     Active Substance: TRAMADOL HYDROCHLORIDE
     Indication: Product used for unknown indication
     Dosage: UNK;  ADDITIONAL INFO: ROUTE: 065
     Route: 065
  116. TRAMADOL HYDROCHLORIDE [Concomitant]
     Active Substance: TRAMADOL HYDROCHLORIDE
     Indication: Infection
     Dosage: UNK;  ADDITIONAL INFO: ROUTE: 065
     Route: 065
  117. TRAMADOL HYDROCHLORIDE [Concomitant]
     Active Substance: TRAMADOL HYDROCHLORIDE
     Dosage: UNK;  ADDITIONAL INFO: ROUTE: 065
     Route: 065
  118. TRAMADOL HYDROCHLORIDE [Concomitant]
     Active Substance: TRAMADOL HYDROCHLORIDE
     Dosage: UNK;  ADDITIONAL INFO: ROUTE: 065
     Route: 065
  119. TRAMADOL HYDROCHLORIDE [Concomitant]
     Active Substance: TRAMADOL HYDROCHLORIDE
     Dosage: UNK;  ADDITIONAL INFO: ROUTE: 065
     Route: 065
  120. TRAMADOL HYDROCHLORIDE [Concomitant]
     Active Substance: TRAMADOL HYDROCHLORIDE
     Dosage: UNK;  ADDITIONAL INFO: ROUTE: 065
     Route: 065
  121. TRAMADOL HYDROCHLORIDE [Concomitant]
     Active Substance: TRAMADOL HYDROCHLORIDE
     Dosage: UNK (OCCLUSIVE)
     Route: 065
  122. ENOXAPARIN [Concomitant]
     Active Substance: ENOXAPARIN
     Indication: Product used for unknown indication
     Dosage: UNK; ADDITIONAL INFO: ROUTE: 065
     Route: 065
  123. ENOXAPARIN [Concomitant]
     Active Substance: ENOXAPARIN
     Dosage: UNK
     Route: 065
  124. ENOXAPARIN [Concomitant]
     Active Substance: ENOXAPARIN
     Dosage: UNK
     Route: 065
  125. ASPIRIN [Concomitant]
     Active Substance: ASPIRIN
     Indication: Product used for unknown indication
     Dosage: UNK; ADDITIONAL INFO: ADDITIONAL INFO: ROUTE: 065
     Route: 065
  126. ASPIRIN [Concomitant]
     Active Substance: ASPIRIN
     Dosage: UNK (OCCLUSIVE)
  127. ASPIRIN [Concomitant]
     Active Substance: ASPIRIN
     Dosage: UNK (OCCLUSIVE)
  128. CODEINE PHOSPHATE [Concomitant]
     Active Substance: CODEINE PHOSPHATE
     Indication: Product used for unknown indication
     Dosage: 300/50 UNK
     Route: 065
  129. ACETAMINOPHEN [Concomitant]
     Active Substance: ACETAMINOPHEN
     Indication: Product used for unknown indication
     Dosage: UNK; (ADDITIONAL INFO: ROUTE: 065)
     Route: 065
  130. ACETAMINOPHEN [Concomitant]
     Active Substance: ACETAMINOPHEN
     Indication: Product used for unknown indication
     Dosage: UNK; (ADDITIONAL INFO: ROUTE: 065)
     Route: 065
  131. ACETAMINOPHEN [Concomitant]
     Active Substance: ACETAMINOPHEN
     Dosage: UNK; (ADDITIONAL INFO: ROUTE: 065)
     Route: 065
  132. ACETAMINOPHEN [Concomitant]
     Active Substance: ACETAMINOPHEN
     Dosage: UNK; (ADDITIONAL INFO: ROUTE: 065)
     Route: 065
  133. ACETAMINOPHEN [Concomitant]
     Active Substance: ACETAMINOPHEN
     Dosage: UNK; (ADDITIONAL INFO: ROUTE: 065)
     Route: 065
  134. ACETAMINOPHEN [Concomitant]
     Active Substance: ACETAMINOPHEN
     Dosage: UNK (OCCLUSIVE)
  135. CODEINE [Concomitant]
     Active Substance: CODEINE
     Indication: Product used for unknown indication
     Dosage: 300/50 UNK
  136. BENDROFLUMETHIAZIDE [Concomitant]
     Active Substance: BENDROFLUMETHIAZIDE
     Indication: Product used for unknown indication
     Dosage: UNK; ADDITIONAL INFO: ROUTE: 065
     Route: 065
  137. BENDROFLUMETHIAZIDE [Concomitant]
     Active Substance: BENDROFLUMETHIAZIDE
     Dosage: UNK; ADDITIONAL INFO: ROUTE: 065
     Route: 065
  138. BENDROFLUMETHIAZIDE [Concomitant]
     Active Substance: BENDROFLUMETHIAZIDE
     Dosage: UNK; ADDITIONAL INFO: ROUTE: 065
     Route: 065
  139. BENDROFLUMETHIAZIDE [Concomitant]
     Active Substance: BENDROFLUMETHIAZIDE
     Dosage: UNK; ADDITIONAL INFO: ROUTE: 065
     Route: 016
  140. BENDROFLUMETHIAZIDE [Concomitant]
     Active Substance: BENDROFLUMETHIAZIDE
     Dosage: UNK; ADDITIONAL INFO: ROUTE: 065
     Route: 065
  141. ACETAMINOPHEN\CAFFEINE [Concomitant]
     Active Substance: ACETAMINOPHEN\CAFFEINE
     Dosage: UNK
  142. MOMETASONE [Concomitant]
     Active Substance: MOMETASONE
     Dosage: UNK ROUTE OF ADMINISTRATION ALSO REPORTED AS UNKNOWN, (ADDITIONAL INFO: ROUTE: 065)
     Route: 016
  143. MOMETASONE [Concomitant]
     Active Substance: MOMETASONE
     Dosage: UNK; (ADDITIONAL INFO: ROUTE: 065)
     Route: 065
  144. MOMETASONE [Concomitant]
     Active Substance: MOMETASONE
     Dosage: UNK; (ADDITIONAL INFO: ROUTE: 065)
     Route: 065
  145. MOMETASONE [Concomitant]
     Active Substance: MOMETASONE
     Dosage: UNK
     Route: 065
  146. MOMETASONE [Concomitant]
     Active Substance: MOMETASONE
     Dosage: UNK
     Route: 016
  147. MOMETASONE [Concomitant]
     Active Substance: MOMETASONE
     Dosage: UNK
     Route: 065
  148. MOMETASONE [Concomitant]
     Active Substance: MOMETASONE
     Dosage: UNK
     Route: 065
  149. MOMETASONE [Concomitant]
     Active Substance: MOMETASONE
     Dosage: UNK
     Route: 065
  150. MORPHINE [Concomitant]
     Active Substance: MORPHINE
     Indication: Product used for unknown indication
     Dosage: UNK
  151. MORPHINE [Concomitant]
     Active Substance: MORPHINE
     Dosage: UNK
     Route: 065
  152. MORPHINE [Concomitant]
     Active Substance: MORPHINE
     Dosage: UNK
     Route: 065
  153. MORPHINE [Concomitant]
     Active Substance: MORPHINE
     Dosage: UNK
     Route: 065

REACTIONS (9)
  - Heart rate irregular [Recovering/Resolving]
  - Atrial fibrillation [Unknown]
  - Off label use [Unknown]
  - Blood creatine phosphokinase increased [Unknown]
  - Infection [Unknown]
  - Product used for unknown indication [Unknown]
  - Tachycardia [Recovering/Resolving]
  - Product use in unapproved indication [Unknown]
  - Disease progression [Unknown]

NARRATIVE: CASE EVENT DATE: 20130306
